FAERS Safety Report 14757058 (Version 4)
Quarter: 2018Q4

REPORT INFORMATION
  Report Type: Spontaneous
  Country: JP (occurrence: JP)
  Receive Date: 20180413
  Receipt Date: 20180810
  Transmission Date: 20190204
  Serious: Yes (Death)
  Sender: FDA-Public Use
  Company Number: JP-PFIZER INC-2018152601

PATIENT
  Age: 52 Year
  Sex: Male
  Weight: 62 kg

DRUGS (9)
  1. REFLEX [Suspect]
     Active Substance: MIRTAZAPINE
     Indication: DEPRESSION
     Dosage: 45 MG, 1X/DAY
     Route: 048
     Dates: start: 20170711
  2. LORAZEPAM. [Suspect]
     Active Substance: LORAZEPAM
     Indication: DEPRESSION
     Dosage: 3 MG, 3X/DAY
     Route: 048
     Dates: start: 20170711
  3. LONASEN [Suspect]
     Active Substance: BLONANSERIN
     Dosage: 12 MG, 3X/DAY
     Route: 048
     Dates: start: 20170914
  4. PARKINES [Suspect]
     Active Substance: TRIHEXYPHENIDYL HYDROCHLORIDE
     Indication: PARKINSONISM
     Dosage: 2 MG, 1X/DAY
     Route: 048
     Dates: start: 20170308
  5. FLUNITRAZEPAM [Suspect]
     Active Substance: FLUNITRAZEPAM
     Indication: INSOMNIA
     Dosage: 2 MG, 1X/DAY
     Route: 048
     Dates: start: 20170224
  6. EFFEXOR [Suspect]
     Active Substance: VENLAFAXINE HYDROCHLORIDE
     Indication: DEPRESSION
     Dosage: 37.5 MG, DAILY
     Route: 048
     Dates: start: 20170928, end: 20171011
  7. EFFEXOR [Suspect]
     Active Substance: VENLAFAXINE HYDROCHLORIDE
     Dosage: 150 MG, 1X/DAY
     Route: 048
     Dates: start: 20171012, end: 20180124
  8. EFFEXOR [Suspect]
     Active Substance: VENLAFAXINE HYDROCHLORIDE
     Dosage: 225 MG, 1X/DAY
     Route: 048
     Dates: start: 20180125
  9. LONASEN [Suspect]
     Active Substance: BLONANSERIN
     Indication: DEPRESSION
     Dosage: 8 MG, 2X/DAY
     Route: 048
     Dates: start: 20170831, end: 20170913

REACTIONS (1)
  - Completed suicide [Fatal]

NARRATIVE: CASE EVENT DATE: 20180329
